FAERS Safety Report 13458241 (Version 7)
Quarter: 2017Q4

REPORT INFORMATION
  Report Type: Report from Study
  Country: US (occurrence: US)
  Receive Date: 20170419
  Receipt Date: 20171016
  Transmission Date: 20180320
  Serious: Yes (Hospitalization, Other)
  Sender: FDA-Public Use
  Company Number: US-GILEAD-2017-0267821

PATIENT
  Age: 48 Year
  Sex: Female

DRUGS (4)
  1. AMBRISENTAN [Suspect]
     Active Substance: AMBRISENTAN
     Indication: PRODUCT USED FOR UNKNOWN INDICATION
     Dosage: 5 MG, QD
     Route: 065
     Dates: start: 20161118
  2. AMLODIPINE [Concomitant]
     Active Substance: AMLODIPINE BESYLATE
  3. TORSEMIDE. [Concomitant]
     Active Substance: TORSEMIDE
  4. ADEMPAS [Concomitant]
     Active Substance: RIOCIGUAT

REACTIONS (13)
  - Oedema peripheral [Not Recovered/Not Resolved]
  - Unevaluable event [Unknown]
  - Asthenia [Not Recovered/Not Resolved]
  - Hypertension [Not Recovered/Not Resolved]
  - Oxygen consumption increased [Not Recovered/Not Resolved]
  - Constipation [Unknown]
  - Sluggishness [Not Recovered/Not Resolved]
  - Dyspnoea [Unknown]
  - Swelling face [Not Recovered/Not Resolved]
  - Generalised oedema [Not Recovered/Not Resolved]
  - Chest pain [Unknown]
  - Pericardial effusion [Unknown]
  - Feeling abnormal [Not Recovered/Not Resolved]
